FAERS Safety Report 5075078-5 (Version None)
Quarter: 2006Q3

REPORT INFORMATION
  Report Type: 
  Country: None (occurrence: None)
  Receive Date: 20060809
  Receipt Date: 20060726
  Transmission Date: 20061208
  Serious: Yes (Death)
  Sender: FDA-Public Use
  Company Number: US-AMGEN-US187971

PATIENT
  Sex: Male

DRUGS (1)
  1. ENBREL [Suspect]
     Indication: PSORIATIC ARTHROPATHY
     Route: 058
     Dates: start: 20030126, end: 20060601

REACTIONS (12)
  - BLOOD VISCOSITY INCREASED [None]
  - CERUMEN REMOVAL [None]
  - CHILLS [None]
  - COUGH [None]
  - FALL [None]
  - HEADACHE [None]
  - MYOCARDIAL INFARCTION [None]
  - OCULAR HYPERAEMIA [None]
  - OEDEMA PERIPHERAL [None]
  - PYREXIA [None]
  - RHINORRHOEA [None]
  - SYNCOPE [None]
